FAERS Safety Report 24195337 (Version 3)
Quarter: 2024Q3

REPORT INFORMATION
  Report Type: Spontaneous
  Country: NL (occurrence: NL)
  Receive Date: 20240809
  Receipt Date: 20240926
  Transmission Date: 20241016
  Serious: Yes (Other)
  Sender: SANDOZ
  Company Number: NL-002147023-NVSC2023NL144101

PATIENT
  Age: 9 Year
  Sex: Male

DRUGS (14)
  1. ARIPIPRAZOLE [Suspect]
     Active Substance: ARIPIPRAZOLE
     Indication: Autism spectrum disorder
     Dosage: 2.5 MG
     Route: 048
     Dates: start: 20230331
  2. BECLOMETHASONE DIPROPIONATE [Suspect]
     Active Substance: BECLOMETHASONE DIPROPIONATE
     Indication: Asthma
     Dosage: 2 DOSAGE FORM, BID
     Route: 055
     Dates: start: 20230320
  3. CHOLECALCIFEROL [Suspect]
     Active Substance: CHOLECALCIFEROL
     Indication: Product used for unknown indication
     Dosage: UNK
     Route: 065
  4. CRIZOTINIB [Suspect]
     Active Substance: CRIZOTINIB
     Indication: Neoplasm malignant
     Dosage: 220 MG, BID
     Route: 048
     Dates: start: 20230211, end: 20230523
  5. CRIZOTINIB [Suspect]
     Active Substance: CRIZOTINIB
     Dosage: 440 MG/M2, QD
     Route: 065
     Dates: start: 20230523
  6. CRIZOTINIB [Suspect]
     Active Substance: CRIZOTINIB
     Dosage: 200 MG/M2
     Route: 048
  7. DESLORATADINE [Suspect]
     Active Substance: DESLORATADINE
     Indication: Asthma
     Dosage: 2.5 MG, PRN
     Route: 048
     Dates: start: 20230320
  8. FLUTICASONE FUROATE [Suspect]
     Active Substance: FLUTICASONE FUROATE
     Indication: Asthma
     Dosage: 1 DOSAGE FORM
     Route: 055
     Dates: start: 20230320
  9. GRANISETRON HYDROCHLORIDE [Suspect]
     Active Substance: GRANISETRON HYDROCHLORIDE
     Indication: Nausea
     Dosage: 2 MG, PRN
     Route: 048
     Dates: start: 20230508
  10. POLYETHYLENE GLYCOLS [Suspect]
     Active Substance: POLYETHYLENE GLYCOLS
     Indication: Constipation
     Dosage: UNK, (10-20 G)
     Route: 065
     Dates: start: 20230320
  11. MELATONIN [Suspect]
     Active Substance: MELATONIN
     Indication: Autism spectrum disorder
     Dosage: 0.5 MG
     Route: 048
     Dates: start: 20230320
  12. METOCLOPRAMIDE [Suspect]
     Active Substance: METOCLOPRAMIDE
     Indication: Nausea
     Dosage: 12 MG, PRN
     Route: 065
     Dates: start: 20230301, end: 20230410
  13. ALBUTEROL [Suspect]
     Active Substance: ALBUTEROL
     Indication: Asthma
     Dosage: UNK, PRN, (1 - 4  DOSIS, 8X/DAY, IF NECESSARY)), RESPIRATORY
     Route: 065
  14. KLYSMA SORBIT [Concomitant]
     Indication: Constipation
     Dosage: UNK
     Route: 065
     Dates: start: 20230327

REACTIONS (6)
  - Sinus bradycardia [Not Recovered/Not Resolved]
  - Electrocardiogram abnormal [Unknown]
  - Heart rate decreased [Unknown]
  - Cyanosis [Unknown]
  - Constipation [Unknown]
  - Nausea [Unknown]

NARRATIVE: CASE EVENT DATE: 20230522
